FAERS Safety Report 5908779-4 (Version None)
Quarter: 2008Q4

REPORT INFORMATION
  Report Type: 
  Country: None (occurrence: None)
  Receive Date: 20081006
  Receipt Date: 20080925
  Transmission Date: 20090506
  Serious: Yes (Other)
  Sender: FDA-Public Use
  Company Number: PHHY2008BR22758

PATIENT
  Age: 38 Year
  Sex: Female

DRUGS (1)
  1. VISKEN [Suspect]
     Indication: HYPERTENSION
     Route: 048

REACTIONS (1)
  - ABORTION SPONTANEOUS [None]
